FAERS Safety Report 5001684-X (Version None)
Quarter: 2006Q2

REPORT INFORMATION
  Report Type: 
  Country: None (occurrence: None)
  Receive Date: 20060511
  Receipt Date: 20060511
  Transmission Date: 20061013
  Serious: Yes (Other)
  Sender: FDA-Public Use
  Company Number: None

PATIENT
  Age: 12 Year
  Sex: Male
  Weight: 96.1626 kg

DRUGS (2)
  1. ABILIFY [Suspect]
     Indication: SCHIZOPHRENIA
     Dosage: SEE IMAGE
  2. DEPAKOTE [Concomitant]

REACTIONS (3)
  - BURNS SECOND DEGREE [None]
  - PHOTOSENSITIVITY REACTION [None]
  - SUNBURN [None]
